FAERS Safety Report 8199327-X (Version None)
Quarter: 2012Q1

REPORT INFORMATION
  Report Type: 
  Country: None (occurrence: None)
  Receive Date: 20120309
  Receipt Date: 20120228
  Transmission Date: 20120608
  Serious: Yes (Death)
  Sender: FDA-Public Use
  Company Number: DE-NOVOPROD-345904

PATIENT
  Sex: Female

DRUGS (1)
  1. ACTRAPID HM(GE) PENFILL [Suspect]
     Indication: TYPE 1 DIABETES MELLITUS

REACTIONS (1)
  - EXPIRED DRUG ADMINISTERED [None]
